FAERS Safety Report 21552046 (Version 2)
Quarter: 2023Q4

REPORT INFORMATION
  Report Type: Report from Study
  Country: US (occurrence: US)
  Receive Date: 20221104
  Receipt Date: 20231117
  Transmission Date: 20240110
  Serious: No
  Sender: FDA-Public Use
  Company Number: US-ABBVIE-4151082

PATIENT
  Age: 64 Year
  Sex: Female

DRUGS (3)
  1. HUMIRA [Suspect]
     Active Substance: ADALIMUMAB
     Indication: Crohn^s disease
     Route: 058
     Dates: start: 20161208
  2. HUMIRA [Suspect]
     Active Substance: ADALIMUMAB
     Route: 058
  3. DEXAMETHASONE [Concomitant]
     Active Substance: DEXAMETHASONE
     Indication: Product used for unknown indication

REACTIONS (7)
  - COVID-19 [Recovered/Resolved]
  - Conjunctivitis [Unknown]
  - Fibromyalgia [Unknown]
  - Nasopharyngitis [Recovering/Resolving]
  - Hiccups [Unknown]
  - Pain [Unknown]
  - Mobility decreased [Unknown]

NARRATIVE: CASE EVENT DATE: 20210301
